FAERS Safety Report 4918585-5 (Version None)
Quarter: 2006Q1

REPORT INFORMATION
  Report Type: 
  Country: None (occurrence: None)
  Receive Date: 20060216
  Receipt Date: 20060130
  Transmission Date: 20060701
  Serious: Yes (Life-Threatening)
  Sender: FDA-Public Use
  Company Number: 1-13576360

PATIENT
  Age: 40 Year
  Sex: Female

DRUGS (4)
  1. SPIRONOLACTONE [Suspect]
     Indication: HYPERTENSION
     Dosage: 1 TAB TWICE DAILY, ORAL
     Route: 048
     Dates: start: 20060118, end: 20060121
  2. MAXIDE AND POTASSIUM SUPPLEMENT [Concomitant]
  3. MOTRIN [Concomitant]
  4. CLONIDINE [Concomitant]

REACTIONS (15)
  - ASTHENIA [None]
  - BLOOD PRESSURE INCREASED [None]
  - BONE PAIN [None]
  - CONDITION AGGRAVATED [None]
  - HEADACHE [None]
  - MOVEMENT DISORDER [None]
  - NAUSEA [None]
  - NECK PAIN [None]
  - ORAL CANDIDIASIS [None]
  - RASH [None]
  - RETCHING [None]
  - SENSATION OF PRESSURE [None]
  - THROAT TIGHTNESS [None]
  - URTICARIA [None]
  - VOMITING [None]
